FAERS Safety Report 7936609-8 (Version None)
Quarter: 2011Q4

REPORT INFORMATION
  Report Type: 
  Country: None (occurrence: None)
  Receive Date: 20111123
  Receipt Date: 20111118
  Transmission Date: 20120403
  Serious: Yes (Death, Hospitalization)
  Sender: FDA-Public Use
  Company Number: MX-SANOFI-AVENTIS-2011SA076399

PATIENT
  Age: 78 Year
  Sex: Female

DRUGS (3)
  1. PLAVIX [Suspect]
     Indication: THROMBOPHLEBITIS
     Route: 048
     Dates: start: 20100101, end: 20111002
  2. AMLODIPINE/VALSARTAN [Concomitant]
     Dosage: DOSE:1 UNIT(S)
     Route: 048
     Dates: end: 20111002
  3. METFORMIN [Concomitant]
     Indication: TYPE 2 DIABETES MELLITUS
     Route: 048
     Dates: start: 20060101, end: 20111002

REACTIONS (2)
  - OFF LABEL USE [None]
  - DIVERTICULITIS [None]
